FAERS Safety Report 11624939 (Version 1)
Quarter: 2015Q4

REPORT INFORMATION
  Report Type: Spontaneous
  Country: IT (occurrence: IT)
  Receive Date: 20151013
  Receipt Date: 20151013
  Transmission Date: 20160304
  Serious: Yes (Hospitalization)
  Sender: FDA-Public Use
  Company Number: IT-TEVA-600019ACC

PATIENT
  Age: 33 Year
  Sex: Female
  Weight: 61 kg

DRUGS (3)
  1. DECADRON [Concomitant]
     Active Substance: DEXAMETHASONE
     Indication: PREMEDICATION
     Route: 042
     Dates: start: 20150922, end: 20150922
  2. PACLITAXEL TEVA - 6 MG/ML CONCENTRATO PER SOLUZIONE PER INFUSIONE [Suspect]
     Active Substance: PACLITAXEL
     Indication: BREAST CANCER
     Dosage: 95 MG WEEKLY
     Route: 042
     Dates: start: 20150922, end: 20150922
  3. TRIMETON [Concomitant]
     Active Substance: CHLORPHENIRAMINE MALEATE
     Indication: PREMEDICATION
     Route: 042
     Dates: start: 20150922, end: 20150922

REACTIONS (5)
  - Loss of consciousness [Recovered/Resolved]
  - Anal sphincter atony [Recovered/Resolved]
  - Bladder sphincter atony [Recovered/Resolved]
  - Hyperhidrosis [Recovered/Resolved]
  - Sopor [Recovered/Resolved]

NARRATIVE: CASE EVENT DATE: 20150922
